FAERS Safety Report 10520974 (Version 1)
Quarter: 2014Q4

REPORT INFORMATION
  Report Type: Spontaneous
  Country: US (occurrence: US)
  Receive Date: 20141016
  Receipt Date: 20141016
  Transmission Date: 20150528
  Serious: Yes (Other)
  Sender: FDA-Public Use
  Company Number: US-BEH-2014045502

PATIENT
  Sex: Female
  Weight: 68 kg

DRUGS (21)
  1. CYMBALTA [Concomitant]
     Active Substance: DULOXETINE HYDROCHLORIDE
  2. CUBICIN [Concomitant]
     Active Substance: DAPTOMYCIN
  3. CLONAZEPAM. [Concomitant]
     Active Substance: CLONAZEPAM
  4. DIPHENHYDRAMINE [Concomitant]
     Active Substance: DIPHENHYDRAMINE
  5. VANCOMYCIN [Concomitant]
     Active Substance: VANCOMYCIN
  6. BACLOFEN. [Concomitant]
     Active Substance: BACLOFEN
  7. TRAZODONE [Concomitant]
     Active Substance: TRAZODONE HYDROCHLORIDE
  8. CYANOCOBALAMIN. [Concomitant]
     Active Substance: CYANOCOBALAMIN
  9. ZOSYN [Concomitant]
     Active Substance: PIPERACILLIN SODIUM\TAZOBACTAM SODIUM
  10. MORPHINE [Concomitant]
     Active Substance: MORPHINE
  11. PHENERGAN [Concomitant]
     Active Substance: PROMETHAZINE HYDROCHLORIDE
  12. ALBUTEROL. [Concomitant]
     Active Substance: ALBUTEROL
  13. MULTIVITAMIN [Concomitant]
     Active Substance: VITAMINS
  14. CIPRO [Concomitant]
     Active Substance: CIPROFLOXACIN HYDROCHLORIDE
  15. ACETAMINOPHEN. [Concomitant]
     Active Substance: ACETAMINOPHEN
  16. WELLBUTRIN [Concomitant]
     Active Substance: BUPROPION HYDROCHLORIDE
  17. FENTANYL. [Concomitant]
     Active Substance: FENTANYL
  18. DOXYCYCLINE. [Concomitant]
     Active Substance: DOXYCYCLINE
  19. LIDOCAINE/PRILOCAINE [Concomitant]
  20. HIZENTRA [Suspect]
     Active Substance: HUMAN IMMUNOGLOBULIN G
     Indication: IMMUNODEFICIENCY COMMON VARIABLE
     Route: 058
  21. EPIPEN [Concomitant]
     Active Substance: EPINEPHRINE

REACTIONS (4)
  - Infection [Unknown]
  - Tendonitis [Unknown]
  - Lethargy [Unknown]
  - Weight increased [Unknown]
